FAERS Safety Report 15195745 (Version 1)
Quarter: 2018Q3

REPORT INFORMATION
  Report Type: Spontaneous
  Country: FR (occurrence: FR)
  Receive Date: 20180725
  Receipt Date: 20180725
  Transmission Date: 20181010
  Serious: Yes (Hospitalization, Disabling)
  Sender: FDA-Public Use
  Company Number: FR-PFIZER INC-2018296604

PATIENT
  Age: 21 Year
  Sex: Male

DRUGS (6)
  1. METHOTREXATE MYLAN [Suspect]
     Active Substance: METHOTREXATE SODIUM
     Indication: B-CELL LYMPHOMA
     Dosage: 4 INJECTIONS OF 15 MG : 60 MG
     Route: 037
     Dates: start: 20150401, end: 20150513
  2. PREDNISONE ARROW [Suspect]
     Active Substance: PREDNISONE
     Indication: B-CELL LYMPHOMA
     Dosage: 40 MG/M2 FOR CYLE, 9 CYCLE : 360 MG/M2
     Route: 042
     Dates: start: 20150310, end: 20150723
  3. MABTHERA [Suspect]
     Active Substance: RITUXIMAB
     Indication: B-CELL LYMPHOMA
     Dosage: 375 MG/M2 FOR CYCLE, 8 CYCLES : 3000 MG/M2
     Route: 042
     Dates: start: 20150314, end: 20150723
  4. VINCRISTINE HOSPIRA [Suspect]
     Active Substance: VINCRISTINE
     Indication: B-CELL LYMPHOMA
     Dosage: 1.4 MG/M2 FOR CYCLE, 9 CYCLE : 12.6 MG/M2
     Route: 042
     Dates: start: 20150310, end: 20150723
  5. ADRIBLASTINE [Suspect]
     Active Substance: DOXORUBICIN
     Indication: B-CELL LYMPHOMA
     Dosage: 50MG/M2 FOR CYCLE, 8 CYCLES : 400 MG/M2
     Route: 042
     Dates: start: 20150314, end: 20150723
  6. ENDOXAN [Suspect]
     Active Substance: CYCLOPHOSPHAMIDE
     Indication: B-CELL LYMPHOMA
     Dosage: 750 MG/M2 FOR CYCLE, 9 CYCLE : 6750 MG/M2
     Route: 042
     Dates: start: 20150310, end: 20150723

REACTIONS (1)
  - Left ventricular dysfunction [Not Recovered/Not Resolved]

NARRATIVE: CASE EVENT DATE: 20170112
